FAERS Safety Report 24572310 (Version 1)
Quarter: 2024Q4

REPORT INFORMATION
  Report Type: Spontaneous
  Country: US (occurrence: None)
  Receive Date: 20241101
  Receipt Date: 20241101
  Transmission Date: 20250115
  Serious: Yes (Death)
  Sender: Public
  Company Number: None

PATIENT
  Sex: Female
  Weight: 88.9 kg

DRUGS (1)
  1. CISPLATIN [Suspect]
     Active Substance: CISPLATIN

REACTIONS (4)
  - Pulse absent [None]
  - Cardiac arrest [None]
  - Myocardial infarction [None]
  - Pulmonary embolism [None]

NARRATIVE: CASE EVENT DATE: 20241014
